FAERS Safety Report 4368351-7 (Version None)
Quarter: 2004Q2

REPORT INFORMATION
  Report Type: 
  Country: None (occurrence: None)
  Receive Date: 20040525
  Receipt Date: 20040514
  Transmission Date: 20050107
  Serious: Yes (Death)
  Sender: FDA-Public Use
  Company Number: 2004-NL-00064NL

PATIENT
  Age: 90 Year
  Sex: Female

DRUGS (7)
  1. PERSANTIN [Suspect]
     Dosage: 400 MG (200 MG, 2 IN 1 D)
     Route: 048
  2. ACENOCOUMAROL (ACENOCOUMAROL) (TA) [Concomitant]
  3. SELOKEEN (METOPROLOL TARTRATE) [Concomitant]
  4. COZAAR [Concomitant]
  5. FUROSEMIDE [Concomitant]
  6. ISOSORBIDE MONONITRATE RETARD (ISOSORBIDE MONONITRATE) [Concomitant]
  7. FERROFUMARAT (FERROUS FUMARATE) [Concomitant]

REACTIONS (4)
  - AGGRESSION [None]
  - CONFUSIONAL STATE [None]
  - PHARMACEUTICAL PRODUCT COMPLAINT [None]
  - SUDDEN DEATH [None]
